FAERS Safety Report 16058190 (Version 1)
Quarter: 2019Q1

REPORT INFORMATION
  Report Type: Spontaneous
  Country: FR (occurrence: FR)
  Receive Date: 20190311
  Receipt Date: 20190311
  Transmission Date: 20190418
  Serious: Yes (Other)
  Sender: FDA-Public Use
  Company Number: FR-MYLANLABS-2013SP002518

PATIENT
  Age: 69 Year
  Sex: Male

DRUGS (13)
  1. SOTALOL. [Concomitant]
     Active Substance: SOTALOL
     Dosage: UNK
  2. TAREG [Concomitant]
     Active Substance: VALSARTAN
     Dosage: UNK
  3. ONDANSETRON HYDROCHLORIDE. [Suspect]
     Active Substance: ONDANSETRON HYDROCHLORIDE
     Indication: PROPHYLAXIS OF NAUSEA AND VOMITING
     Dosage: UNK
     Route: 042
     Dates: start: 20121107, end: 20130102
  4. KARDEGIC [Concomitant]
     Active Substance: ASPIRIN DL-LYSINE
     Dosage: UNK
  5. ONDANSETRON HYDROCHLORIDE. [Suspect]
     Active Substance: ONDANSETRON HYDROCHLORIDE
     Dates: start: 20121226, end: 20130102
  6. CARBOPLATIN. [Suspect]
     Active Substance: CARBOPLATIN
     Dosage: UNK
     Dates: start: 20121226, end: 20130102
  7. VALSARTAN. [Concomitant]
     Active Substance: VALSARTAN
  8. GEMCITABINE [Suspect]
     Active Substance: GEMCITABINE\GEMCITABINE HYDROCHLORIDE
     Indication: BLADDER CANCER
     Dosage: UNK
     Dates: start: 20121226, end: 20130102
  9. GEMCITABINE [Suspect]
     Active Substance: GEMCITABINE\GEMCITABINE HYDROCHLORIDE
     Dosage: 1634 MILLIGRAM
     Route: 042
     Dates: start: 20121107, end: 20130102
  10. ZOPHREN                            /00955301/ [Suspect]
     Active Substance: ONDANSETRON
     Indication: PRODUCT USED FOR UNKNOWN INDICATION
     Dosage: UNK
     Route: 024
     Dates: start: 20121107, end: 20130102
  11. ACETYLSALICYLATE LYSINE [Concomitant]
     Active Substance: ASPIRIN DL-LYSINE
     Dosage: UNK
  12. CARBOPLATIN. [Suspect]
     Active Substance: CARBOPLATIN
     Indication: BLADDER CANCER
     Dosage: 350 MILLIGRAM
     Route: 042
     Dates: start: 20121107, end: 20130102
  13. PRAVASTATIN. [Concomitant]
     Active Substance: PRAVASTATIN
     Dosage: UNK

REACTIONS (2)
  - Amaurosis [Recovered/Resolved with Sequelae]
  - Transient ischaemic attack [Recovered/Resolved with Sequelae]

NARRATIVE: CASE EVENT DATE: 20130107
